FAERS Safety Report 20320316 (Version 1)
Quarter: 2022Q1

REPORT INFORMATION
  Report Type: Spontaneous
  Country: US (occurrence: US)
  Receive Date: 20220111
  Receipt Date: 20220111
  Transmission Date: 20220423
  Serious: No
  Sender: FDA-Public Use
  Company Number: US-GE HEALTHCARE-2021CSU006173

PATIENT
  Age: 60 Year
  Sex: Male
  Weight: 98.866 kg

DRUGS (3)
  1. OMNIPAQUE [Suspect]
     Active Substance: IOHEXOL
     Indication: Computerised tomogram abdomen
     Dosage: 150 ML (1.5 ML/SEC), SINGLE
     Route: 042
     Dates: start: 20211126, end: 20211126
  2. OMNIPAQUE [Suspect]
     Active Substance: IOHEXOL
     Indication: Prostate cancer
  3. SALINE [Concomitant]
     Active Substance: SODIUM CHLORIDE
     Dosage: 2ML / SEC
     Route: 042
     Dates: start: 20211126, end: 20211126

REACTIONS (1)
  - Infusion site extravasation [Recovered/Resolved]

NARRATIVE: CASE EVENT DATE: 20211126
